FAERS Safety Report 12510487 (Version 1)
Quarter: 2016Q2

REPORT INFORMATION
  Report Type: Spontaneous
  Country: MX (occurrence: MX)
  Receive Date: 20160629
  Receipt Date: 20160629
  Transmission Date: 20160815
  Serious: Yes (Hospitalization)
  Sender: FDA-Public Use
  Company Number: MX-SA-2016SA119649

PATIENT
  Age: 75 Year
  Sex: Male
  Weight: 95 kg

DRUGS (5)
  1. APROVEL [Suspect]
     Active Substance: IRBESARTAN
     Indication: HYPERTENSION
     Route: 048
     Dates: start: 2005
  2. EUTEBROL [Concomitant]
     Indication: MEMORY IMPAIRMENT
     Dosage: 20 MG, TABLETS
     Route: 048
  3. ASPIRIN PROTECT [Concomitant]
     Active Substance: ASPIRIN
     Route: 048
     Dates: end: 201605
  4. SERMION [Concomitant]
     Active Substance: NICERGOLINE
     Indication: MEMORY IMPAIRMENT
     Dosage: 30 MG, TABLETS
     Route: 048
  5. ANAPSIQUE [Concomitant]
     Route: 048

REACTIONS (7)
  - Cartilage injury [Recovered/Resolved]
  - Hypercholesterolaemia [Recovered/Resolved]
  - Haematoma [Unknown]
  - Syncope [Recovered/Resolved]
  - Hypertension [Unknown]
  - Hypoglycaemia [Recovered/Resolved]
  - Dizziness [Recovered/Resolved]

NARRATIVE: CASE EVENT DATE: 2012
